FAERS Safety Report 5242401-8 (Version None)
Quarter: 2007Q1

REPORT INFORMATION
  Report Type: 
  Country: None (occurrence: None)
  Receive Date: 20070221
  Receipt Date: 20070206
  Transmission Date: 20070707
  Serious: Yes (Death, Hospitalization)
  Sender: FDA-Public Use
  Company Number: JP-BRISTOL-MYERS SQUIBB COMPANY-13679048

PATIENT
  Age: 52 Year
  Sex: Male

DRUGS (9)
  1. EFAVIRENZ [Suspect]
     Indication: HIV INFECTION
     Route: 048
     Dates: start: 20050314, end: 20051215
  2. EPIVIR [Suspect]
     Indication: HIV INFECTION
     Route: 048
     Dates: start: 20050314, end: 20051215
  3. RETROVIR [Suspect]
     Indication: HIV INFECTION
     Dates: start: 20050314, end: 20050508
  4. CONTOMIN [Concomitant]
     Indication: DEPRESSION
     Dates: start: 20050410, end: 20051215
  5. SILECE [Concomitant]
     Indication: DEPRESSION
     Dates: start: 20050410, end: 20050508
  6. LORMETAZEPAM [Concomitant]
     Indication: DEPRESSION
     Dates: start: 20050410, end: 20050508
  7. TETRAMIDE [Concomitant]
     Indication: DEPRESSION
     Dates: start: 20050410, end: 20050508
  8. PAXIL [Concomitant]
     Indication: DEPRESSION
     Dates: start: 20050410, end: 20051215
  9. TENOFOVIR [Concomitant]
     Indication: HIV INFECTION
     Dates: start: 20050606, end: 20051215

REACTIONS (4)
  - LYMPHOMA [None]
  - MALNUTRITION [None]
  - ORAL INTAKE REDUCED [None]
  - PANCYTOPENIA [None]
